FAERS Safety Report 9693405 (Version 1)
Quarter: 2013Q4

REPORT INFORMATION
  Report Type: Spontaneous
  Country: US (occurrence: US)
  Receive Date: 20131118
  Receipt Date: 20131118
  Transmission Date: 20140711
  Serious: No
  Sender: FDA-Public Use
  Company Number: US-TEVA-445128USA

PATIENT
  Age: 42 Year
  Sex: Female
  Weight: 57.66 kg

DRUGS (10)
  1. PARAGARD 380A [Suspect]
     Indication: CONTRACEPTION
     Route: 015
     Dates: start: 20121115, end: 20131113
  2. ALBUTEROL [Concomitant]
     Indication: ASTHMA
  3. HYPERSOL [Concomitant]
     Indication: ASTHMA
  4. AMBIEN [Concomitant]
  5. WELLBUTRIN [Concomitant]
  6. ADVAIR [Concomitant]
     Indication: ASTHMA
  7. SPIRIVA [Concomitant]
     Indication: ASTHMA
  8. IRON [Concomitant]
  9. COLISTIN [Concomitant]
  10. CAYSTON [Concomitant]

REACTIONS (1)
  - Device expulsion [Recovered/Resolved]
